FAERS Safety Report 6661425-7 (Version None)
Quarter: 2010Q1

REPORT INFORMATION
  Report Type: 
  Country: None (occurrence: None)
  Receive Date: 20100329
  Receipt Date: 20100318
  Transmission Date: 20100710
  Serious: Yes (Hospitalization)
  Sender: FDA-Public Use
  Company Number: 09-ADE-NU-0006-ACT

PATIENT
  Sex: Male
  Weight: 18.1439 kg

DRUGS (5)
  1. H.P. ACTHAR GEL 80 U/ML [Suspect]
     Indication: OPSOCLONUS MYOCLONUS
     Dosage: 0.28 ML QOD IM
     Route: 030
     Dates: start: 20071001
  2. IMMUNE GLOBULIN INTRAVENOUS (HUMAN) [Concomitant]
  3. BACTRIM [Concomitant]
  4. PREVACID [Concomitant]
  5. RITUXIMAB [Concomitant]

REACTIONS (2)
  - ADRENOMEGALY [None]
  - CUSHING'S SYNDROME [None]
